FAERS Safety Report 17911953 (Version 2)
Quarter: 2020Q2

REPORT INFORMATION
  Report Type: Spontaneous
  Country: AT (occurrence: AT)
  Receive Date: 20200618
  Receipt Date: 20200630
  Transmission Date: 20200714
  Serious: Yes (Hospitalization, Other)
  Sender: FDA-Public Use
  Company Number: AT-ACCORD-185557

PATIENT
  Age: 66 Year
  Sex: Male

DRUGS (1)
  1. MITOMYCIN. [Suspect]
     Active Substance: MITOMYCIN
     Indication: URETHRAL STENOSIS
     Dosage: 1.6 MILLIGRAM LATER RECEIVED TWO MORE INSTILLATIONS DUE TO RECURRENCE OF THE?STRICTURE
     Route: 026
     Dates: start: 2016

REACTIONS (2)
  - Urethral fistula [Recovered/Resolved]
  - Off label use [Unknown]
